FAERS Safety Report 10266158 (Version 1)
Quarter: 2014Q2

REPORT INFORMATION
  Report Type: Spontaneous
  Country: FR (occurrence: FR)
  Receive Date: 20140627
  Receipt Date: 20140627
  Transmission Date: 20141212
  Serious: Yes (Hospitalization)
  Sender: FDA-Public Use
  Company Number: FR-LUNDBECK-DKLU1101423

PATIENT
  Age: 33 Year
  Sex: Female

DRUGS (7)
  1. URBANYL [Suspect]
     Indication: PRODUCT USED FOR UNKNOWN INDICATION
     Dates: start: 201401, end: 20140221
  2. URBANYL [Suspect]
     Dates: start: 20140221, end: 20140313
  3. LAMICTAL [Suspect]
     Indication: EPILEPSY
     Route: 048
     Dates: start: 201308
  4. LAMICTAL [Suspect]
     Route: 048
     Dates: start: 20131013
  5. LAMICTAL [Suspect]
     Route: 048
     Dates: start: 20131013
  6. LAMICTAL [Suspect]
     Dates: start: 20140201, end: 201403
  7. LAMICTAL [Suspect]
     Dates: start: 20140201, end: 201403

REACTIONS (1)
  - Drug reaction with eosinophilia and systemic symptoms [Recovered/Resolved]
